FAERS Safety Report 18981588 (Version 2)
Quarter: 2021Q3

REPORT INFORMATION
  Report Type: Other
  Country: KR (occurrence: KR)
  Receive Date: 20210308
  Receipt Date: 20210702
  Transmission Date: 20211014
  Serious: Yes (Other)
  Sender: FDA-Public Use
  Company Number: KR-ROCHE-2783942

PATIENT
  Age: 7 Year
  Sex: Male

DRUGS (18)
  1. MINOXIDIL. [Concomitant]
     Active Substance: MINOXIDIL
  2. KALIMATE [Concomitant]
     Active Substance: CALCIUM POLYSTYRENE SULFONATE
  3. AZATHIOPRINE. [Concomitant]
     Active Substance: AZATHIOPRINE
  4. MYCOPHENOLATE MOFETIL. [Suspect]
     Active Substance: MYCOPHENOLATE MOFETIL
     Indication: PROPHYLAXIS AGAINST TRANSPLANT REJECTION
     Route: 065
  5. VALGANCICLOVIR. [Concomitant]
     Active Substance: VALGANCICLOVIR
     Dosage: FROM DAY 19 TO DAY 57 AFTER KT
  6. LEVOTHYROXINE. [Concomitant]
     Active Substance: LEVOTHYROXINE
     Indication: HYPOTHYROIDISM
  7. RITUXIMAB. [Suspect]
     Active Substance: RITUXIMAB
     Indication: MESANGIOPROLIFERATIVE GLOMERULONEPHRITIS
     Dosage: 2 DOSES IN 8 WEEKS
     Route: 065
  8. METHYLPREDNISOLONE. [Suspect]
     Active Substance: METHYLPREDNISOLONE
     Indication: PROPHYLAXIS AGAINST TRANSPLANT REJECTION
     Route: 065
  9. PREDNISOLONE. [Suspect]
     Active Substance: PREDNISOLONE
     Indication: PROPHYLAXIS AGAINST TRANSPLANT REJECTION
     Route: 065
  10. GANCICLOVIR. [Concomitant]
     Active Substance: GANCICLOVIR
     Dosage: FROM DAY 1 TO DAY 18 AFTER KT
  11. BACTRIM [Suspect]
     Active Substance: SULFAMETHOXAZOLE\TRIMETHOPRIM
     Indication: PROPHYLAXIS
     Route: 065
  12. CYCLOSPORIN A [Suspect]
     Active Substance: CYCLOSPORINE
     Indication: NEPHROTIC SYNDROME
     Dosage: 3 ? 5 MG/KG/DAY, MEDIAN TROUGH LEVEL 32.4 NG/ML
     Route: 065
  13. SODIUM BICARBONATE. [Concomitant]
     Active Substance: SODIUM BICARBONATE
  14. VALPROATE SODIUM. [Concomitant]
     Active Substance: VALPROATE SODIUM
  15. TACROLIMUS. [Suspect]
     Active Substance: TACROLIMUS
     Indication: PROPHYLAXIS AGAINST TRANSPLANT REJECTION
     Dosage: 0.15?0.675 MG/KG/DAY WITH TARGET TROUGH LEVEL OF 8 ?10 NG/ML
     Route: 065
  16. CARVEDILOL. [Concomitant]
     Active Substance: CARVEDILOL
  17. AMLODIPINE [Concomitant]
     Active Substance: AMLODIPINE BESYLATE
  18. FERRIC HYDROXIDE POLYMALTOSE COMPLEX [Concomitant]
     Active Substance: IRON POLYMALTOSE

REACTIONS (3)
  - Bicytopenia [Unknown]
  - Diarrhoea [Unknown]
  - Ascites [Recovered/Resolved]
